FAERS Safety Report 19946978 (Version 1)
Quarter: 2021Q4

REPORT INFORMATION
  Report Type: Spontaneous
  Country: PT (occurrence: PT)
  Receive Date: 20211012
  Receipt Date: 20211012
  Transmission Date: 20220303
  Serious: Yes (Hospitalization)
  Sender: FDA-Public Use
  Company Number: PT-AMNEAL PHARMACEUTICALS-2021-AMRX-04149

PATIENT
  Age: 69 Year
  Sex: Female
  Weight: 55 kg

DRUGS (1)
  1. LIDOCAINE [Suspect]
     Active Substance: LIDOCAINE
     Indication: Local anaesthesia
     Dosage: UNK, 80 ML OF 2% SOLUTION (1600MG)
     Route: 042

REACTIONS (8)
  - Psychomotor hyperactivity [Not Recovered/Not Resolved]
  - Tachycardia [Recovered/Resolved]
  - Hypertension [Recovered/Resolved]
  - Ventricular extrasystoles [Recovered/Resolved]
  - Supraventricular extrasystoles [Recovered/Resolved]
  - Altered state of consciousness [Not Recovered/Not Resolved]
  - Hypotension [Recovered/Resolved]
  - Overdose [Unknown]
